FAERS Safety Report 9228955 (Version 1)
Quarter: 2013Q2

REPORT INFORMATION
  Report Type: Spontaneous
  Country: US (occurrence: US)
  Receive Date: 20130412
  Receipt Date: 20130412
  Transmission Date: 20140414
  Serious: No
  Sender: FDA-Public Use
  Company Number: US-ASTRAZENECA-2013SE20776

PATIENT
  Sex: Female

DRUGS (1)
  1. PULMICORT FLEXHALER [Suspect]
     Indication: ASTHMA
     Dosage: 90 MCG , 1 PUFF BID
     Route: 055
     Dates: start: 201303

REACTIONS (3)
  - Cough [Unknown]
  - Off label use [Unknown]
  - Drug dose omission [Unknown]
